FAERS Safety Report 16846164 (Version 1)
Quarter: 2019Q3

REPORT INFORMATION
  Report Type: Spontaneous
  Country: US (occurrence: US)
  Receive Date: 20190924
  Receipt Date: 20190924
  Transmission Date: 20191005
  Serious: No
  Sender: FDA-Public Use
  Company Number: US-SA-2019SA259503

PATIENT
  Age: 54 Year
  Sex: Male

DRUGS (8)
  1. VIBERZI [Concomitant]
     Active Substance: ELUXADOLINE
  2. NAPROXEN. [Concomitant]
     Active Substance: NAPROXEN
  3. FEROSUL [Concomitant]
  4. ZOLPIDEM [Concomitant]
     Active Substance: ZOLPIDEM TARTRATE
  5. DUPIXENT [Suspect]
     Active Substance: DUPILUMAB
     Indication: DERMATITIS ATOPIC
     Dosage: 300 MG, QOW
     Route: 058
     Dates: start: 20181115
  6. KETOCONAZOLE. [Concomitant]
     Active Substance: KETOCONAZOLE
  7. MUPIROCIN. [Concomitant]
     Active Substance: MUPIROCIN
  8. AZELASTINE. [Concomitant]
     Active Substance: AZELASTINE HYDROCHLORIDE

REACTIONS (1)
  - Dermatitis [Not Recovered/Not Resolved]
